FAERS Safety Report 20727968 (Version 1)
Quarter: 2022Q2

REPORT INFORMATION
  Report Type: Report from Study
  Country: US (occurrence: US)
  Receive Date: 20220419
  Receipt Date: 20220419
  Transmission Date: 20220721
  Serious: Yes (Hospitalization, Other)
  Sender: FDA-Public Use
  Company Number: US-BRISTOL-MYERS SQUIBB COMPANY-2022-020053

PATIENT
  Age: 89 Year
  Sex: Female
  Weight: 45 kg

DRUGS (9)
  1. REVLIMID [Suspect]
     Active Substance: LENALIDOMIDE
     Indication: Plasma cell myeloma
     Dosage: SCHEDULE: 28 DAYS CONTINUOUS
     Route: 048
     Dates: start: 20150410, end: 20161003
  2. REVLIMID [Suspect]
     Active Substance: LENALIDOMIDE
     Dosage: 21 DAYS ON, 7 DAYS OFF
     Route: 048
     Dates: start: 20161026, end: 20161111
  3. REVLIMID [Suspect]
     Active Substance: LENALIDOMIDE
     Dosage: EVERY OTHER DAY FOR 28 DAYS
     Route: 048
     Dates: start: 20161121, end: 20171115
  4. REVLIMID [Suspect]
     Active Substance: LENALIDOMIDE
     Dosage: 21 DAYS ON, 7 DAYS OFF
     Route: 048
     Dates: start: 20210807
  5. DEXAMETHASONE [Suspect]
     Active Substance: DEXAMETHASONE
     Indication: Plasma cell myeloma
     Dosage: WEEKLY
     Route: 048
     Dates: start: 20150410, end: 20161003
  6. DEXAMETHASONE [Suspect]
     Active Substance: DEXAMETHASONE
     Dosage: WEEKLY
     Route: 048
     Dates: start: 20161026, end: 20161111
  7. DEXAMETHASONE [Suspect]
     Active Substance: DEXAMETHASONE
     Dosage: WEEKLY
     Route: 048
     Dates: start: 20161121, end: 20171115
  8. DEXAMETHASONE [Suspect]
     Active Substance: DEXAMETHASONE
     Dosage: WEEKLY
     Route: 048
     Dates: start: 20210816, end: 20210906
  9. VELCADE [Suspect]
     Active Substance: BORTEZOMIB
     Indication: Plasma cell myeloma
     Dosage: 1XWEEKLY, NO REST PERIOD : DAY 1 Q 7D
     Route: 058
     Dates: start: 20150410, end: 20150720

REACTIONS (6)
  - Palpitations [Not Recovered/Not Resolved]
  - Dyspnoea [Unknown]
  - Pleural effusion [Unknown]
  - Pulmonary embolism [Unknown]
  - Deep vein thrombosis [Unknown]
  - Cardiac failure congestive [Unknown]

NARRATIVE: CASE EVENT DATE: 20220403
